FAERS Safety Report 18373452 (Version 2)
Quarter: 2020Q4

REPORT INFORMATION
  Report Type: Report from Study
  Country: JP (occurrence: JP)
  Receive Date: 20201012
  Receipt Date: 20201216
  Transmission Date: 20210114
  Serious: No
  Sender: FDA-Public Use
  Company Number: JP-PFIZER INC-2020383604

PATIENT
  Age: 52 Year
  Sex: Female
  Weight: 58 kg

DRUGS (9)
  1. LORLATINIB [Suspect]
     Active Substance: LORLATINIB
     Dosage: 100 MG, ALTERNATE DAY
     Route: 048
     Dates: start: 20190409, end: 20190419
  2. LORLATINIB [Suspect]
     Active Substance: LORLATINIB
     Dosage: 75 MG/DAY, CYCLIC (5 DAYS ON AND 2 DAYS OFF)
     Route: 048
     Dates: start: 20190422, end: 20190503
  3. LORLATINIB [Suspect]
     Active Substance: LORLATINIB
     Dosage: 75 MG/DAY, EVERY THREE DAYS
     Route: 048
     Dates: start: 20190513, end: 20190526
  4. LORLATINIB [Suspect]
     Active Substance: LORLATINIB
     Dosage: 100 MG, DAILY
     Route: 048
     Dates: start: 20200420, end: 20200429
  5. LORLATINIB [Suspect]
     Active Substance: LORLATINIB
     Indication: NON-SMALL CELL LUNG CANCER
     Dosage: 100 MG, DAILY
     Route: 048
     Dates: start: 20190319, end: 20190403
  6. LORLATINIB [Suspect]
     Active Substance: LORLATINIB
     Dosage: 50 MG/DAY, EVERY THREE DAYS
     Route: 048
     Dates: start: 20190726, end: 20191209
  7. LORLATINIB [Suspect]
     Active Substance: LORLATINIB
     Dosage: 50 MG/DAY, EVERY THREE DAYS
     Route: 048
     Dates: start: 20190527, end: 20190718
  8. LORLATINIB [Suspect]
     Active Substance: LORLATINIB
     Dosage: 50 MG/DAY, TWICE A WEEK
     Route: 048
     Dates: start: 20200511, end: 20200723
  9. LORLATINIB [Suspect]
     Active Substance: LORLATINIB
     Dosage: 50 MG/DAY, TWICE A WEEK
     Route: 048
     Dates: start: 20200803

REACTIONS (10)
  - Vision blurred [Recovered/Resolved]
  - Nipple oedema [Unknown]
  - Blister [Unknown]
  - Vestibular disorder [Unknown]
  - Hallucination [Recovered/Resolved]
  - Depressed level of consciousness [Recovered/Resolved]
  - Tinnitus [Recovered/Resolved]
  - Dyslipidaemia [Unknown]
  - Dysarthria [Recovered/Resolved]
  - Oedema peripheral [Unknown]

NARRATIVE: CASE EVENT DATE: 201904
